FAERS Safety Report 4365036-8 (Version None)
Quarter: 2004Q2

REPORT INFORMATION
  Report Type: 
  Country: None (occurrence: None)
  Receive Date: 20040521
  Receipt Date: 20040511
  Transmission Date: 20050107
  Serious: Yes (Other)
  Sender: FDA-Public Use
  Company Number: A-CH2004-04285

PATIENT
  Age: 76 Year
  Sex: Female

DRUGS (12)
  1. TRACLEER [Suspect]
     Indication: PULMONARY HYPERTENSION
     Dosage: 62.5 MG, BID, ORAL
     Route: 048
     Dates: start: 20031219, end: 20031229
  2. CAPTOPRIL AND HYDROCHLOROTHIAZIDE [Suspect]
  3. ZOCOR [Suspect]
  4. PREDNISONE TAB [Concomitant]
  5. ZYRTEC [Concomitant]
  6. DIFF K (POTASSIUM CHLORIDE) [Concomitant]
  7. FORADIL [Concomitant]
  8. PREVISCAN (FLUINDONE) [Concomitant]
  9. FLIXOTIDE ^GLAXO^ (FLUTICASONE PROPIONATE) [Concomitant]
  10. OXYGEN (OXYGEN) [Concomitant]
  11. VENTOLIN [Concomitant]
  12. LUMIGAN [Concomitant]

REACTIONS (5)
  - ALANINE AMINOTRANSFERASE INCREASED [None]
  - ASPARTATE AMINOTRANSFERASE INCREASED [None]
  - BLOOD ALKALINE PHOSPHATASE INCREASED [None]
  - GAMMA-GLUTAMYLTRANSFERASE INCREASED [None]
  - LIVER FUNCTION TEST ABNORMAL [None]
